FAERS Safety Report 6684707-1 (Version None)
Quarter: 2010Q2

REPORT INFORMATION
  Report Type: 
  Country: None (occurrence: None)
  Receive Date: 20100416
  Receipt Date: 20100406
  Transmission Date: 20101027
  Serious: Yes (Other)
  Sender: FDA-Public Use
  Company Number: US-JNJCH-2010008816

PATIENT
  Sex: Male
  Weight: 3.9 kg

DRUGS (1)
  1. DEXTROMETHORPHAN UNSPECIFIED [Suspect]
     Indication: DRUG USE FOR UNKNOWN INDICATION
     Dosage: TEXT:UNSPECIFIED
     Route: 065

REACTIONS (2)
  - CHOREA [None]
  - WRONG DRUG ADMINISTERED [None]
